FAERS Safety Report 9981746 (Version 2)
Quarter: 2014Q1

REPORT INFORMATION
  Report Type: Report from Study
  Country: US (occurrence: US)
  Receive Date: 20140307
  Receipt Date: 20140307
  Transmission Date: 20141002
  Serious: No
  Sender: FDA-Public Use
  Company Number: US-ABBVIE-13P-163-1085440-00

PATIENT
  Age: 28 Year
  Sex: Female

DRUGS (4)
  1. HUMIRA [Suspect]
     Indication: COLITIS ULCERATIVE
     Dates: start: 2012
  2. ASACOL [Concomitant]
     Indication: COLITIS ULCERATIVE
  3. ALEVE [Concomitant]
     Indication: ABDOMINAL PAIN
  4. ALEVE [Concomitant]
     Indication: MUSCLE SPASMS

REACTIONS (2)
  - Hypoaesthesia [Not Recovered/Not Resolved]
  - Hypoaesthesia [Not Recovered/Not Resolved]
